FAERS Safety Report 8543759-4 (Version None)
Quarter: 2012Q3

REPORT INFORMATION
  Report Type: 
  Country: None (occurrence: None)
  Receive Date: 20120727
  Receipt Date: 20120718
  Transmission Date: 20120928
  Serious: Yes (Other)
  Sender: FDA-Public Use
  Company Number: FR-EISAI INC-E3810-05707-SPO-FR

PATIENT
  Age: 66 Year
  Sex: Female

DRUGS (4)
  1. RABEPRAZOLE SODIUM [Suspect]
     Indication: COUGH
  2. BECLOMETHASONE DIPROPIONATE [Concomitant]
     Indication: INFECTION
     Route: 065
  3. RABEPRAZOLE SODIUM [Suspect]
     Indication: GASTRIC DISORDER
     Route: 048
  4. DESLORATADINE [Concomitant]
     Route: 065

REACTIONS (1)
  - DIPLOPIA [None]
